FAERS Safety Report 9266135 (Version 1)
Quarter: 2013Q2

REPORT INFORMATION
  Report Type: Report from Study
  Country: CN (occurrence: CN)
  Receive Date: 20130502
  Receipt Date: 20130502
  Transmission Date: 20140414
  Serious: Yes (Other)
  Sender: FDA-Public Use
  Company Number: CN-ROCHE-1217010

PATIENT
  Sex: 0

DRUGS (16)
  1. MYCOPHENOLATE MOFETIL [Suspect]
     Indication: PROPHYLAXIS AGAINST TRANSPLANT REJECTION
     Dosage: 0.5-1 G/D
     Route: 048
  2. DACLIZUMAB [Suspect]
     Indication: PROPHYLAXIS AGAINST TRANSPLANT REJECTION
     Dosage: 50 MG EACH TIME FOR A TOTAL OF 2 TIMES
     Route: 048
  3. METHYLPREDNISOLONE [Suspect]
     Indication: PROPHYLAXIS AGAINST TRANSPLANT REJECTION
     Dosage: 240-500 MG/D
     Route: 048
  4. CYCLOSPORINE A [Suspect]
     Indication: PROPHYLAXIS AGAINST TRANSPLANT REJECTION
     Dosage: POST OPERATIVE 3 MONTHS, 6.7-10 MG/KG
     Route: 048
  5. CYCLOSPORINE A [Suspect]
     Dosage: POST OPERATIVE 6 MONTHS, 4-8.2 MG/KG
     Route: 048
  6. CYCLOSPORINE A [Suspect]
     Dosage: POST OPERATIVE 12 MONTHS, 3.1-5 MG/KG
     Route: 048
  7. AZATHIOPRINE [Suspect]
     Indication: PROPHYLAXIS AGAINST TRANSPLANT REJECTION
     Dosage: 50-100 MG/D
     Route: 048
  8. PREDNISONE [Suspect]
     Indication: PROPHYLAXIS AGAINST TRANSPLANT REJECTION
     Dosage: STARTING DOSE WAS 40-80 MG
     Route: 048
  9. PREDNISONE [Suspect]
     Dosage: REDUCED TO 15-20 MG AFTER 1 WEEK
     Route: 048
  10. PREDNISONE [Suspect]
     Dosage: REDUCED TO 7.5 -10 MG AFTER 1 MONTH
     Route: 048
  11. PREDNISONE [Suspect]
     Dosage: REDUCED TO 2.5-5 MG ONCE DAILY OR ONCE EVERY 2 DAYS AFTER 6 MONTHS
     Route: 048
  12. ANTITHYMOCYTE GLOBULIN [Suspect]
     Indication: PROPHYLAXIS AGAINST TRANSPLANT REJECTION
     Dosage: 25-50 MG/D FOR 7-10 DAYS
     Route: 048
  13. BASILIXIMAB [Suspect]
     Indication: PROPHYLAXIS AGAINST TRANSPLANT REJECTION
     Dosage: 20 MG EACH TIME FOR A TOTAL OF 2 TIMES
     Route: 048
  14. TACROLIMUS [Suspect]
     Indication: PROPHYLAXIS AGAINST TRANSPLANT REJECTION
     Dosage: POST OPERATIVE 3 MONTHS, 0.15 -0.32 MG/KG
     Route: 048
  15. TACROLIMUS [Suspect]
     Dosage: POST OPERATIVE 6 MONTHS, 0.09- 0.17 MG/KG
     Route: 048
  16. TACROLIMUS [Suspect]
     Dosage: POST OPERATIVE 12 MONTHS, 0.06-0.11MG/KG
     Route: 048

REACTIONS (5)
  - Drug-induced liver injury [Unknown]
  - Urinary tract infection [Unknown]
  - Lung infection [Unknown]
  - Bone marrow failure [Unknown]
  - Herpes simplex [Unknown]
